FAERS Safety Report 7096234-0 (Version None)
Quarter: 2010Q4

REPORT INFORMATION
  Report Type: 
  Country: None (occurrence: None)
  Receive Date: 20101109
  Receipt Date: 20101109
  Transmission Date: 20110411
  Serious: No
  Sender: FDA-Public Use
  Company Number: None

PATIENT
  Age: 54 Year
  Sex: Female
  Weight: 55.8 kg

DRUGS (1)
  1. CIPRO [Suspect]

REACTIONS (3)
  - DRY MOUTH [None]
  - RETCHING [None]
  - TONGUE DISORDER [None]
